FAERS Safety Report 8619683-5 (Version None)
Quarter: 2012Q3

REPORT INFORMATION
  Report Type: 
  Country: None (occurrence: None)
  Receive Date: 20120824
  Receipt Date: 20120820
  Transmission Date: 20120928
  Serious: Yes (Other)
  Sender: FDA-Public Use
  Company Number: US-PFIZER INC-2012204265

PATIENT
  Age: 50 Year
  Sex: Female
  Weight: 58.957 kg

DRUGS (6)
  1. DILANTIN [Suspect]
     Indication: EPILEPSY
     Dosage: UNK
     Route: 048
     Dates: end: 20120801
  2. LIPITOR [Concomitant]
     Indication: BLOOD CHOLESTEROL INCREASED
     Dosage: 80 MG, 1X/DAY
     Dates: start: 20120501, end: 20120801
  3. TOPAMAX [Concomitant]
     Indication: EPILEPSY
     Dosage: UNK
  4. SIMVASTATIN [Concomitant]
     Indication: BLOOD CHOLESTEROL INCREASED
     Dosage: UNK
  5. PHENYTOIN [Suspect]
     Indication: EPILEPSY
     Dosage: UNK
     Dates: start: 20111201
  6. ASPIRIN [Concomitant]
     Dosage: 325 MG, UNK

REACTIONS (13)
  - TRANSIENT ISCHAEMIC ATTACK [None]
  - BLISTER [None]
  - PRURITUS [None]
  - VOMITING [None]
  - EAR CONGESTION [None]
  - MALAISE [None]
  - BALANCE DISORDER [None]
  - NASOPHARYNGITIS [None]
  - CONVULSION [None]
  - SLUGGISHNESS [None]
  - INFLUENZA [None]
  - ANTICONVULSANT DRUG LEVEL DECREASED [None]
  - FEELING ABNORMAL [None]
